FAERS Safety Report 23401554 (Version 2)
Quarter: 2024Q1

REPORT INFORMATION
  Report Type: Spontaneous
  Country: US (occurrence: US)
  Receive Date: 20240115
  Receipt Date: 20240119
  Transmission Date: 20240410
  Serious: No
  Sender: FDA-Public Use
  Company Number: US-PFIZER INC-PV202300160395

PATIENT
  Age: 81 Year
  Sex: Female

DRUGS (2)
  1. IBRANCE [Suspect]
     Active Substance: PALBOCICLIB
     Indication: Breast cancer female
     Dosage: 125 MG, CYCLIC (DAILY, TAKE ON DAYS 1-21 OF A 28-DAY CYCLE TAKE WITH OR WITHOUT FOOD)
     Route: 048
     Dates: start: 20230621
  2. AROMASIN [Concomitant]
     Active Substance: EXEMESTANE
     Indication: Breast cancer female
     Dosage: 25 MG ORALLY EVERY DAY. TAKE AFTER A MEAL.

REACTIONS (1)
  - Hypoacusis [Unknown]
